FAERS Safety Report 11686968 (Version 1)
Quarter: 2015Q4

REPORT INFORMATION
  Report Type: Spontaneous
  Country: US (occurrence: US)
  Receive Date: 20151030
  Receipt Date: 20151030
  Transmission Date: 20160314
  Serious: No
  Sender: FDA-Public Use
  Company Number: US-BAUSCH-BL-2015-015290

PATIENT
  Age: 10 Year
  Sex: Female

DRUGS (4)
  1. BEPREVE [Suspect]
     Active Substance: BEPOTASTINE BESILATE
     Indication: ALLERGY TO PLANTS
  2. MULTIVITAMINS [Concomitant]
     Active Substance: VITAMINS
     Indication: SUPPLEMENTATION THERAPY
     Route: 048
  3. PROBIOTIC [Concomitant]
     Active Substance: PROBIOTICS NOS
     Indication: SUPPLEMENTATION THERAPY
     Route: 048
  4. BEPREVE [Suspect]
     Active Substance: BEPOTASTINE BESILATE
     Indication: SEASONAL ALLERGY
     Route: 047
     Dates: start: 20150502, end: 201506

REACTIONS (7)
  - Nausea [Recovered/Resolved]
  - Retching [Recovered/Resolved]
  - Abnormal dreams [Recovered/Resolved]
  - Dysgeusia [Recovered/Resolved]
  - Sleep disorder [Unknown]
  - Headache [Not Recovered/Not Resolved]
  - Sinusitis [Unknown]

NARRATIVE: CASE EVENT DATE: 2015
